FAERS Safety Report 14927528 (Version 2)
Quarter: 2021Q2

REPORT INFORMATION
  Report Type: Spontaneous
  Country: DE (occurrence: DE)
  Receive Date: 20180523
  Receipt Date: 20210401
  Transmission Date: 20210716
  Serious: Yes (Other)
  Sender: FDA-Public Use
  Company Number: PHHY2017DE048979

PATIENT
  Age: 27 Year
  Sex: Female

DRUGS (3)
  1. BRIVARACETAM [Interacting]
     Active Substance: BRIVARACETAM
     Indication: FRONTAL LOBE EPILEPSY
     Dosage: 200 MG, QD (MAX. 200 MG/D)
     Route: 065
  2. CARBAMAZEPINE. [Suspect]
     Active Substance: CARBAMAZEPINE
     Indication: FRONTAL LOBE EPILEPSY
     Dosage: 400 MG, QD
     Route: 065
  3. LAMOTRIGINE. [Concomitant]
     Active Substance: LAMOTRIGINE
     Indication: FRONTAL LOBE EPILEPSY
     Dosage: MAX. 400 MG/ D
     Route: 065

REACTIONS (4)
  - Hypersensitivity [Unknown]
  - Drug interaction [Unknown]
  - Rash maculo-papular [Unknown]
  - Anticonvulsant drug level increased [Unknown]
